FAERS Safety Report 18286013 (Version 1)
Quarter: 2020Q3

REPORT INFORMATION
  Report Type: Report from Study
  Country: US (occurrence: US)
  Receive Date: 20200919
  Receipt Date: 20200919
  Transmission Date: 20201103
  Serious: Yes (Other)
  Sender: FDA-Public Use
  Company Number: US-AMGEN-USASL2020092903

PATIENT
  Age: 60 Year
  Sex: Female

DRUGS (2)
  1. REPATHA [Suspect]
     Active Substance: EVOLOCUMAB
     Dosage: 140 MILLIGRAM, Q2WK
     Route: 065
  2. REPATHA [Suspect]
     Active Substance: EVOLOCUMAB
     Indication: HYPERCHOLESTEROLAEMIA
     Dosage: 140 MILLIGRAM, Q2WK
     Route: 065
     Dates: start: 20200601

REACTIONS (8)
  - Injection site pain [Not Recovered/Not Resolved]
  - Device difficult to use [Recovered/Resolved]
  - Injection site haemorrhage [Unknown]
  - Wrong technique in product usage process [Unknown]
  - Pruritus [Unknown]
  - Injection site erythema [Unknown]
  - Injection site bruising [Unknown]
  - Injection site swelling [Unknown]

NARRATIVE: CASE EVENT DATE: 2020
